FAERS Safety Report 18936916 (Version 1)
Quarter: 2021Q1

REPORT INFORMATION
  Report Type: Spontaneous
  Country: DE (occurrence: DE)
  Receive Date: 20210224
  Receipt Date: 20210224
  Transmission Date: 20210420
  Serious: Yes (Other)
  Sender: FDA-Public Use
  Company Number: DE-ELI_LILLY_AND_COMPANY-DE201512004537

PATIENT
  Age: 46 Year
  Sex: Female

DRUGS (4)
  1. HUMALOG [Suspect]
     Active Substance: INSULIN LISPRO
     Indication: TYPE 1 DIABETES MELLITUS
     Dosage: UNK UNK, UNKNOWN
     Route: 058
     Dates: start: 2005
  2. CANDESARTAN. [Concomitant]
     Active Substance: CANDESARTAN
  3. L?THYROXIN [LEVOTHYROXINE SODIUM] [Concomitant]
     Active Substance: LEVOTHYROXINE SODIUM
  4. LANTUS [Concomitant]
     Active Substance: INSULIN GLARGINE

REACTIONS (5)
  - Headache [Unknown]
  - Palpitations [Unknown]
  - Erythema [Unknown]
  - Vasodilatation [Unknown]
  - Anaphylactic shock [Unknown]
